FAERS Safety Report 18545334 (Version 1)
Quarter: 2020Q4

REPORT INFORMATION
  Report Type: Spontaneous
  Country: US (occurrence: US)
  Receive Date: 20201125
  Receipt Date: 20201125
  Transmission Date: 20210114
  Serious: Yes (Other)
  Sender: FDA-Public Use
  Company Number: US-BEH-2020125161

PATIENT
  Age: 66 Year
  Sex: Female

DRUGS (2)
  1. HIZENTRA [Suspect]
     Active Substance: HUMAN IMMUNOGLOBULIN G
     Indication: IMMUNODEFICIENCY COMMON VARIABLE
     Dosage: 10 GRAM, QOW
     Route: 058
     Dates: start: 20201115, end: 20201115
  2. HIZENTRA [Suspect]
     Active Substance: HUMAN IMMUNOGLOBULIN G
     Dosage: 5 GRAM, QOW
     Route: 058
     Dates: start: 20201115, end: 20201115

REACTIONS (6)
  - Hypoaesthesia [Unknown]
  - Hyperhidrosis [Unknown]
  - Tremor [Unknown]
  - Dyspnoea [Unknown]
  - Dysphagia [Unknown]
  - Malaise [Unknown]

NARRATIVE: CASE EVENT DATE: 20201116
